FAERS Safety Report 5065382-9 (Version None)
Quarter: 2006Q3

REPORT INFORMATION
  Report Type: 
  Country: None (occurrence: None)
  Receive Date: 20060707
  Receipt Date: 20051228
  Transmission Date: 20061208
  Serious: Yes (Hospitalization)
  Sender: FDA-Public Use
  Company Number: SUS1-2005-00963

PATIENT
  Age: 15 Year
  Sex: Male

DRUGS (3)
  1. PENTASA [Suspect]
     Indication: INFLAMMATORY BOWEL DISEASE
     Dosage: 4G DAILY, ORAL
     Route: 048
     Dates: start: 20051124, end: 20051130
  2. URSODIOL [Concomitant]
  3. OMEPRAZOLE [Concomitant]

REACTIONS (1)
  - PANCREATITIS ACUTE [None]
